FAERS Safety Report 9222654 (Version 1)
Quarter: 2013Q1

REPORT INFORMATION
  Report Type: Spontaneous
  Country: US (occurrence: None)
  Receive Date: 20120914
  Receipt Date: 20120914
  Transmission Date: 20140127
  Serious: Yes (Other)
  Sender: FDA-Public Use
  Company Number: JPI-P-021731

PATIENT
  Age: 37 Year
  Sex: Female
  Weight: 77.11 kg

DRUGS (8)
  1. XYREM (500 MILLIGRAM/MILLILITERS, SOLUTION) (SODIUM OXYBATE) [Suspect]
     Indication: CATAPLEXY
     Route: 048
     Dates: start: 20060414
  2. CYCLOSPORINE [Concomitant]
  3. AZATHIOPRINE [Concomitant]
  4. AMLODIPINE [Concomitant]
  5. ARIPIPRAZOLE [Concomitant]
  6. LAMOTRIGINE [Concomitant]
  7. VENLFAXINE HYDROCHLORIDE EXTENDED-RELEASE [Concomitant]
  8. AMPHETAMINE, DEXTROAMPHETAMINE MIXED SALTS [Concomitant]

REACTIONS (1)
  - Sleep apnoea syndrome [None]
